FAERS Safety Report 20068662 (Version 1)
Quarter: 2021Q4

REPORT INFORMATION
  Report Type: Spontaneous
  Country: US (occurrence: US)
  Receive Date: 20211115
  Receipt Date: 20211115
  Transmission Date: 20220303
  Serious: No
  Sender: FDA-Public Use
  Company Number: US-PERRIGO-20US018095

PATIENT
  Sex: Female
  Weight: 106.58 kg

DRUGS (3)
  1. ENTOCORT EC [Suspect]
     Active Substance: BUDESONIDE
     Indication: Colitis
     Dosage: 200 MG, UNKNOWN
     Route: 065
  2. ENTYVIO [Suspect]
     Active Substance: VEDOLIZUMAB
     Indication: Colitis
     Dosage: UNKNOWN, UNKNOWN
     Route: 065
  3. MESALAMINE [Suspect]
     Active Substance: MESALAMINE
     Indication: Colitis
     Dosage: UNKNOWN, UNKNOWN
     Route: 065

REACTIONS (4)
  - Lip disorder [Unknown]
  - Weight increased [Unknown]
  - Drug ineffective for unapproved indication [Unknown]
  - Overdose [Unknown]
